FAERS Safety Report 23942724 (Version 1)
Quarter: 2024Q2

REPORT INFORMATION
  Report Type: Spontaneous
  Country: US (occurrence: None)
  Receive Date: 20240605
  Receipt Date: 20240605
  Transmission Date: 20240716
  Serious: No
  Sender: FDA-Public Use
  Company Number: None

PATIENT
  Sex: Male

DRUGS (3)
  1. LENALIDOMIDE [Suspect]
     Active Substance: LENALIDOMIDE
     Indication: Plasma cell myeloma
     Route: 048
     Dates: start: 202303
  2. POMALYST [Suspect]
     Active Substance: POMALIDOMIDE
  3. REMLIMID [Concomitant]

REACTIONS (4)
  - White blood cell count decreased [None]
  - Prescribed overdose [None]
  - Therapy cessation [None]
  - Therapy change [None]
